FAERS Safety Report 18850816 (Version 1)
Quarter: 2021Q1

REPORT INFORMATION
  Report Type: Spontaneous
  Country: US (occurrence: US)
  Receive Date: 20210204
  Receipt Date: 20210204
  Transmission Date: 20210420
  Serious: No
  Sender: FDA-Public Use
  Company Number: US-GLAXOSMITHKLINE-US2021AMR020437

PATIENT
  Sex: Female

DRUGS (1)
  1. ZEJULA [Suspect]
     Active Substance: NIRAPARIB
     Indication: OVARIAN CANCER
     Dosage: 300 MG, QD

REACTIONS (6)
  - Diarrhoea [Unknown]
  - Nausea [Unknown]
  - Bowel movement irregularity [Unknown]
  - Insomnia [Unknown]
  - Dry mouth [Unknown]
  - Constipation [Unknown]
